FAERS Safety Report 8051438-5 (Version None)
Quarter: 2012Q1

REPORT INFORMATION
  Report Type: 
  Country: None (occurrence: None)
  Receive Date: 20120117
  Receipt Date: 20120105
  Transmission Date: 20120608
  Serious: Yes (Hospitalization)
  Sender: FDA-Public Use
  Company Number: JP-ASTRAZENECA-2012SE02636

PATIENT
  Age: 28834 Day
  Sex: Female

DRUGS (7)
  1. CEFAZOLIN SODIUM [Suspect]
     Indication: SEPSIS
     Dates: start: 20110701, end: 20110707
  2. CEFMETAZON [Suspect]
     Indication: SEPSIS
     Dates: start: 20110723, end: 20110726
  3. CLINDAMYCIN [Suspect]
     Indication: SEPSIS
     Dates: start: 20110619, end: 20110623
  4. MEROPENEM [Suspect]
     Indication: SEPSIS
     Route: 042
     Dates: start: 20110619, end: 20110623
  5. MEROPENEM [Suspect]
     Route: 042
     Dates: start: 20110709, end: 20110715
  6. OMEPRAZOLE [Concomitant]
     Indication: DUODENAL ULCER HAEMORRHAGE
     Dates: start: 20110618, end: 20110715
  7. FERROUS SULFATE TAB [Concomitant]
     Indication: ANAEMIA
     Dates: start: 20110618, end: 20110622

REACTIONS (1)
  - INSULIN AUTOIMMUNE SYNDROME [None]
